FAERS Safety Report 11374595 (Version 1)
Quarter: 2015Q3

REPORT INFORMATION
  Report Type: Spontaneous
  Country: US (occurrence: None)
  Receive Date: 20150812
  Receipt Date: 20150812
  Transmission Date: 20151125
  Serious: No
  Sender: FDA-Public Use
  Company Number: None

PATIENT
  Age: 5 Year
  Sex: Male
  Weight: 18.14 kg

DRUGS (7)
  1. QVAR INHALER [Concomitant]
  2. PULMICORT NEBULIZER [Concomitant]
  3. ALBUTEROL NEBULIZER [Concomitant]
     Active Substance: ALBUTEROL
  4. SINGULAIR [Suspect]
     Active Substance: MONTELUKAST SODIUM
     Indication: ASTHMA
     Dosage: TAKEN BY MOUTH
     Dates: start: 20150115, end: 20150420
  5. NASONEX [Concomitant]
     Active Substance: MOMETASONE FUROATE
  6. SINGULAIR [Suspect]
     Active Substance: MONTELUKAST SODIUM
     Indication: HYPERSENSITIVITY
     Dosage: TAKEN BY MOUTH
     Dates: start: 20150115, end: 20150420
  7. CLARITIN [Concomitant]
     Active Substance: LORATADINE

REACTIONS (8)
  - Crying [None]
  - Personality change [None]
  - Depression [None]
  - Fight in school [None]
  - Emotional disorder [None]
  - Hysterical psychosis [None]
  - Aggression [None]
  - Antisocial behaviour [None]

NARRATIVE: CASE EVENT DATE: 20150115
